FAERS Safety Report 8143283-7 (Version None)
Quarter: 2012Q1

REPORT INFORMATION
  Report Type: 
  Country: None (occurrence: None)
  Receive Date: 20120217
  Receipt Date: 20120210
  Transmission Date: 20120608
  Serious: Yes (Hospitalization, Other)
  Sender: FDA-Public Use
  Company Number: US-BAYER-2011-038865

PATIENT
  Age: 31 Year
  Sex: Female
  Weight: 65.76 kg

DRUGS (1)
  1. YASMIN [Suspect]
     Indication: PREMENSTRUAL SYNDROME
     Dosage: UNK
     Dates: start: 20020701, end: 20070615

REACTIONS (10)
  - PULMONARY THROMBOSIS [None]
  - MENTAL DISORDER [None]
  - DEEP VEIN THROMBOSIS [None]
  - PAIN IN EXTREMITY [None]
  - INJURY [None]
  - THYROID DISORDER [None]
  - HYPOTHYROIDISM [None]
  - ANHEDONIA [None]
  - ANXIETY [None]
  - PULMONARY EMBOLISM [None]
